FAERS Safety Report 24448396 (Version 1)
Quarter: 2024Q4

REPORT INFORMATION
  Report Type: Spontaneous
  Country: IT (occurrence: IT)
  Receive Date: 20241017
  Receipt Date: 20241017
  Transmission Date: 20250114
  Serious: Yes (Death, Hospitalization, Other)
  Sender: ALEXION PHARMACEUTICALS
  Company Number: None

PATIENT
  Age: 70 Year
  Weight: 56 kg

DRUGS (3)
  1. IMFINZI [Suspect]
     Active Substance: DURVALUMAB
     Indication: Small cell lung cancer
  2. CARBOPLATIN [Suspect]
     Active Substance: CARBOPLATIN
     Indication: Small cell lung cancer
  3. ETOPOSIDE [Suspect]
     Active Substance: ETOPOSIDE
     Indication: Small cell lung cancer
     Dosage: 152MG PER 45 MINUTI SOMMINISTRAZIONE ENDOVENOSA IN DATA 24/07/2024152MG PER 45 MINUTI SOMMINISTRAZIO

REACTIONS (5)
  - Polyneuropathy [Fatal]
  - Paraesthesia [Fatal]
  - Aphonia [Fatal]
  - Asthenia [Fatal]
  - Dysphagia [Fatal]
